FAERS Safety Report 4493827-1 (Version None)
Quarter: 2004Q4

REPORT INFORMATION
  Report Type: 
  Country: None (occurrence: None)
  Receive Date: 20041102
  Receipt Date: 20041019
  Transmission Date: 20050328
  Serious: Yes (Disabling)
  Sender: FDA-Public Use
  Company Number: 2004240466FR

PATIENT
  Age: 82 Year
  Sex: Female

DRUGS (5)
  1. CELEBREX [Suspect]
     Indication: RHEUMATOID ARTHRITIS
     Dosage: 200 MG, QD, ORAL
     Route: 048
     Dates: start: 20010101
  2. PREDNISOLONE [Concomitant]
  3. METHOTREXATE [Concomitant]
  4. DIGOXIN [Concomitant]
  5. VASTAREL (TRIMETAZIDINE HYDROCHLORIDE) [Concomitant]

REACTIONS (2)
  - ARTERIAL THROMBOSIS [None]
  - DEAFNESS UNILATERAL [None]
